FAERS Safety Report 4378403-3 (Version None)
Quarter: 2004Q2

REPORT INFORMATION
  Report Type: 
  Country: None (occurrence: None)
  Receive Date: 20040609
  Receipt Date: 20040603
  Transmission Date: 20050107
  Serious: Yes (Death, Other)
  Sender: FDA-Public Use
  Company Number: USA-2004-0014648

PATIENT
  Age: 26 Year
  Sex: Male
  Weight: 115.2 kg

DRUGS (5)
  1. OXYCONTIN [Suspect]
     Dosage: 80 MG,
  2. COCAINE (COCAINE) [Suspect]
  3. XANAX [Suspect]
  4. DIPHENHYDRAMINE HCL [Suspect]
  5. ECSTASY (MDMA) [Suspect]

REACTIONS (10)
  - ACCIDENT [None]
  - BRAIN OEDEMA [None]
  - CARDIOMEGALY [None]
  - COMA [None]
  - DRUG SCREEN POSITIVE [None]
  - MULTIPLE DRUG OVERDOSE ACCIDENTAL [None]
  - MYOCARDITIS [None]
  - OBESITY [None]
  - PULMONARY OEDEMA [None]
  - SELF-MEDICATION [None]
